FAERS Safety Report 8602427-0 (Version None)
Quarter: 2012Q3

REPORT INFORMATION
  Report Type: 
  Country: None (occurrence: None)
  Receive Date: 20120817
  Receipt Date: 20120807
  Transmission Date: 20120928
  Serious: Yes (Death, Other)
  Sender: FDA-Public Use
  Company Number: IT-CELGENEUS-083-50794-12080905

PATIENT

DRUGS (2)
  1. VIDAZA [Suspect]
     Dosage: 100 MILLIGRAM
     Route: 065
     Dates: start: 20051001, end: 20110801
  2. VIDAZA [Suspect]
     Dosage: 75 MILLIGRAM/SQ. METER
     Route: 065
     Dates: start: 20051001, end: 20110801

REACTIONS (10)
  - ACUTE MYELOID LEUKAEMIA [None]
  - SEPSIS [None]
  - PNEUMONIA [None]
  - INJECTION SITE ERYTHEMA [None]
  - CONSTIPATION [None]
  - ANAEMIA [None]
  - THROMBOCYTOPENIA [None]
  - NEUTROPENIA [None]
  - RECURRENT CANCER [None]
  - INFECTION [None]
